FAERS Safety Report 4720574-0 (Version None)
Quarter: 2005Q3

REPORT INFORMATION
  Report Type: 
  Country: None (occurrence: None)
  Receive Date: 20050719
  Receipt Date: 20050705
  Transmission Date: 20060218
  Serious: Yes (Hospitalization, Other)
  Sender: FDA-Public Use
  Company Number: 2005097076

PATIENT
  Sex: Male
  Weight: 72.5755 kg

DRUGS (5)
  1. DETROL LA CAPSULE, PROLONGED CAPSULE (TOLTERODINE L-TARTRATE) [Suspect]
     Indication: ILL-DEFINED DISORDER
     Dosage: 8 MG (4 MG, 2 IN 1 D)
     Dates: start: 20000101
  2. ALL OTHER THERAPEUTIC PRODUCTSALL OTHER THERAPEUTIC PRODUCTS) [Concomitant]
  3. AMBIEN [Concomitant]
  4. BEXTRA [Concomitant]
  5. FLONASE [Concomitant]

REACTIONS (5)
  - BACK DISORDER [None]
  - DRUG INEFFECTIVE [None]
  - DRY MOUTH [None]
  - ENURESIS [None]
  - NERVE INJURY [None]
